FAERS Safety Report 4620632-5 (Version None)
Quarter: 2005Q1

REPORT INFORMATION
  Report Type: 
  Country: None (occurrence: None)
  Receive Date: 20050324
  Receipt Date: 20050318
  Transmission Date: 20050727
  Serious: Yes (Other)
  Sender: FDA-Public Use
  Company Number: GBWYE517921MAR05

PATIENT
  Age: 42 Year
  Sex: Female

DRUGS (1)
  1. EFFEXOR [Suspect]
     Route: 048
     Dates: start: 20050201

REACTIONS (1)
  - HYPERPROLACTINAEMIA [None]
